FAERS Safety Report 10915148 (Version 1)
Quarter: 2015Q1

REPORT INFORMATION
  Report Type: Spontaneous
  Country: GR (occurrence: GR)
  Receive Date: 20150316
  Receipt Date: 20150316
  Transmission Date: 20150721
  Serious: Yes (Other)
  Sender: FDA-Public Use
  Company Number: GR-ROCHE-1550679

PATIENT
  Age: 38 Year
  Sex: Female

DRUGS (1)
  1. ROACTEMRA [Suspect]
     Active Substance: TOCILIZUMAB
     Indication: RHEUMATOID ARTHRITIS
     Dosage: STARTED 3 YEARS AGO. (400MG / 45KG EVERY MONTH)
     Route: 042

REACTIONS (4)
  - Amnesia [Recovering/Resolving]
  - Disturbance in attention [Recovering/Resolving]
  - Fatigue [Recovering/Resolving]
  - Depressed mood [Recovering/Resolving]
